FAERS Safety Report 7572123-X (Version None)
Quarter: 2011Q2

REPORT INFORMATION
  Report Type: 
  Country: None (occurrence: None)
  Receive Date: 20110624
  Receipt Date: 20110614
  Transmission Date: 20111010
  Serious: Yes (Other)
  Sender: FDA-Public Use
  Company Number: ES-CELGENEUS-144-50794-11061967

PATIENT
  Age: 73 Year
  Sex: Male

DRUGS (2)
  1. EPOGEN [Concomitant]
     Route: 065
     Dates: end: 20110501
  2. VIDAZA [Suspect]
     Route: 065
     Dates: start: 20110401

REACTIONS (2)
  - HAEMOLYTIC ANAEMIA [None]
  - APLASIA PURE RED CELL [None]
